FAERS Safety Report 6129774-9 (Version None)
Quarter: 2009Q1

REPORT INFORMATION
  Report Type: 
  Country: None (occurrence: None)
  Receive Date: 20090323
  Receipt Date: 20090323
  Transmission Date: 20090719
  Serious: Yes (Other)
  Sender: FDA-Public Use
  Company Number: None

PATIENT
  Age: 39 Year
  Sex: Female
  Weight: 67.1324 kg

DRUGS (2)
  1. CLINDAMYCIN HCL [Suspect]
     Indication: ENDODONTIC PROCEDURE
     Dosage: 300 MG 4 X DAY PO
     Route: 048
     Dates: start: 20090313, end: 20090315
  2. CLINDAMYCIN HCL [Suspect]
     Indication: INFECTION
     Dosage: 300 MG 4 X DAY PO
     Route: 048
     Dates: start: 20090313, end: 20090315

REACTIONS (8)
  - ARTHRALGIA [None]
  - DRUG HYPERSENSITIVITY [None]
  - DYSPNOEA [None]
  - HEADACHE [None]
  - INFLUENZA LIKE ILLNESS [None]
  - NIGHT SWEATS [None]
  - PAIN [None]
  - PYREXIA [None]
